FAERS Safety Report 26107144 (Version 1)
Quarter: 2025Q4

REPORT INFORMATION
  Report Type: Spontaneous
  Country: EU (occurrence: EU)
  Receive Date: 20251201
  Receipt Date: 20251201
  Transmission Date: 20260117
  Serious: Yes (Hospitalization)
  Sender: MYLAN
  Company Number: EU-MYLANLABS-2025M1100003

PATIENT
  Age: 30 Year
  Sex: Female

DRUGS (16)
  1. EPINEPHRINE [Suspect]
     Active Substance: EPINEPHRINE
     Indication: Epidural anaesthesia
     Dosage: UNK, INJECTED 2ML OF LIDOCAINE 20 MG/ML AND EPINEPHRINE [ADRENALINE] 5 ?G/ML
  2. EPINEPHRINE [Suspect]
     Active Substance: EPINEPHRINE
     Dosage: UNK, INJECTED 2ML OF LIDOCAINE 20 MG/ML AND EPINEPHRINE [ADRENALINE] 5 ?G/ML
     Route: 008
  3. EPINEPHRINE [Suspect]
     Active Substance: EPINEPHRINE
     Dosage: UNK, INJECTED 2ML OF LIDOCAINE 20 MG/ML AND EPINEPHRINE [ADRENALINE] 5 ?G/ML
     Route: 008
  4. EPINEPHRINE [Suspect]
     Active Substance: EPINEPHRINE
     Dosage: UNK, INJECTED 2ML OF LIDOCAINE 20 MG/ML AND EPINEPHRINE [ADRENALINE] 5 ?G/ML
  5. LIDOCAINE [Suspect]
     Active Substance: LIDOCAINE
     Indication: Epidural anaesthesia
     Dosage: UNK, INJECTED 2ML OF LIDOCAINE 20 MG/ML AND EPINEPHRINE [ADRENALINE] 5 ?G/ML
  6. LIDOCAINE [Suspect]
     Active Substance: LIDOCAINE
     Dosage: UNK, INJECTED 2ML OF LIDOCAINE 20 MG/ML AND EPINEPHRINE [ADRENALINE] 5 ?G/ML
     Route: 008
  7. LIDOCAINE [Suspect]
     Active Substance: LIDOCAINE
     Dosage: UNK, INJECTED 2ML OF LIDOCAINE 20 MG/ML AND EPINEPHRINE [ADRENALINE] 5 ?G/ML
     Route: 008
  8. LIDOCAINE [Suspect]
     Active Substance: LIDOCAINE
     Dosage: UNK, INJECTED 2ML OF LIDOCAINE 20 MG/ML AND EPINEPHRINE [ADRENALINE] 5 ?G/ML
  9. BUPIVACAINE [Suspect]
     Active Substance: BUPIVACAINE
     Indication: Epidural anaesthesia
     Dosage: UNK, 10ML INJECTION OF A BUPIVACAINE 0.8 MG/ML AND SUFENTANIL 1 ?G/ML SOLUTION
  10. BUPIVACAINE [Suspect]
     Active Substance: BUPIVACAINE
     Dosage: UNK, 10ML INJECTION OF A BUPIVACAINE 0.8 MG/ML AND SUFENTANIL 1 ?G/ML SOLUTION
     Route: 008
  11. BUPIVACAINE [Suspect]
     Active Substance: BUPIVACAINE
     Dosage: UNK, 10ML INJECTION OF A BUPIVACAINE 0.8 MG/ML AND SUFENTANIL 1 ?G/ML SOLUTION
     Route: 008
  12. BUPIVACAINE [Suspect]
     Active Substance: BUPIVACAINE
     Dosage: UNK, 10ML INJECTION OF A BUPIVACAINE 0.8 MG/ML AND SUFENTANIL 1 ?G/ML SOLUTION
  13. SUFENTANIL [Suspect]
     Active Substance: SUFENTANIL
     Indication: Epidural anaesthesia
     Dosage: UNK, 10ML INJECTION OF A BUPIVACAINE 0.8 MG/ML AND SUFENTANIL 1 ?G/ML SOLUTION
  14. SUFENTANIL [Suspect]
     Active Substance: SUFENTANIL
     Dosage: UNK, 10ML INJECTION OF A BUPIVACAINE 0.8 MG/ML AND SUFENTANIL 1 ?G/ML SOLUTION
     Route: 008
  15. SUFENTANIL [Suspect]
     Active Substance: SUFENTANIL
     Dosage: UNK, 10ML INJECTION OF A BUPIVACAINE 0.8 MG/ML AND SUFENTANIL 1 ?G/ML SOLUTION
     Route: 008
  16. SUFENTANIL [Suspect]
     Active Substance: SUFENTANIL
     Dosage: UNK, 10ML INJECTION OF A BUPIVACAINE 0.8 MG/ML AND SUFENTANIL 1 ?G/ML SOLUTION

REACTIONS (3)
  - Horner^s syndrome [Recovering/Resolving]
  - Paresis [Recovering/Resolving]
  - Maternal exposure during delivery [Recovered/Resolved]
